FAERS Safety Report 8950708 (Version 1)
Quarter: 2012Q4

REPORT INFORMATION
  Report Type: 
  Country: GB (occurrence: US)
  Receive Date: 20121207
  Receipt Date: 20121207
  Transmission Date: 20130627
  Serious: Yes (Hospitalization)
  Sender: FDA-Public Use
  Company Number: US-009507513-1211USA010450

PATIENT
  Age: 51 None
  Sex: Female

DRUGS (13)
  1. TEMODAR [Suspect]
     Indication: GLIOBLASTOMA
     Dosage: 410 mg, daily day1-5
     Route: 048
     Dates: start: 20100811, end: 20100815
  2. AVASTIN (BEVACIZUMAB) [Suspect]
     Indication: GLIOBLASTOMA
     Dosage: 1 mg, qow
     Route: 042
     Dates: start: 20100811
  3. IRINOTECAN HYDROCHLORIDE [Suspect]
     Indication: GLIOBLASTOMA
     Dosage: 2 mg, qow
     Route: 042
     Dates: start: 20100811
  4. DECADRON [Concomitant]
  5. SYMBICORT [Concomitant]
  6. FLEXERIL [Concomitant]
  7. ARTHROTEC [Concomitant]
  8. ZOLOFT [Concomitant]
  9. CYMBALTA [Concomitant]
  10. XANAX [Concomitant]
  11. PEPCID [Concomitant]
  12. ULTRACET [Concomitant]
  13. KEPPRA [Concomitant]

REACTIONS (3)
  - Colitis ischaemic [Recovered/Resolved]
  - Pulmonary embolism [Recovered/Resolved]
  - Diarrhoea [Recovered/Resolved]
